FAERS Safety Report 21059624 (Version 1)
Quarter: 2022Q3

REPORT INFORMATION
  Report Type: Spontaneous
  Country: US (occurrence: US)
  Receive Date: 20220708
  Receipt Date: 20220708
  Transmission Date: 20221027
  Serious: Yes (Other)
  Sender: FDA-Public Use
  Company Number: US-GW PHARMA-2022-US-022565

PATIENT
  Sex: Male
  Weight: 111.1 kg

DRUGS (1)
  1. EPIDIOLEX [Suspect]
     Active Substance: CANNABIDIOL
     Indication: Lennox-Gastaut syndrome
     Dosage: 13.6 MILLILITER
     Route: 048
     Dates: start: 20220607

REACTIONS (3)
  - Fall [Unknown]
  - Headache [Unknown]
  - Neck pain [Unknown]
